FAERS Safety Report 6645763-X (Version None)
Quarter: 2010Q1

REPORT INFORMATION
  Report Type: 
  Country: None (occurrence: None)
  Receive Date: 20100318
  Receipt Date: 20100301
  Transmission Date: 20100710
  Serious: Yes (Hospitalization)
  Sender: FDA-Public Use
  Company Number: IPC201003-000056

PATIENT
  Age: 79 Year
  Sex: Male

DRUGS (17)
  1. HYDROCHLOROTHIAZIDE [Suspect]
     Dosage: 200 MG, 4 IN 1 D, 100 MG, 4 IN 1 D
     Dates: start: 20000128, end: 20010709
  2. HYDROCHLOROTHIAZIDE [Suspect]
     Dosage: 200 MG, 4 IN 1 D, 100 MG, 4 IN 1 D
     Dates: start: 20010709
  3. TRANDOLAPRIL AND VERAPAMIL HYDROCHLORIDE EXT. REL. [Suspect]
     Dosage: 180/2 MG TWICE DAILY , 240/2 MG DAILY,
     Dates: start: 20000128, end: 20000421
  4. TRANDOLAPRIL AND VERAPAMIL HYDROCHLORIDE EXT. REL. [Suspect]
     Dosage: 180/2 MG TWICE DAILY , 240/2 MG DAILY,
     Dates: start: 20000421, end: 20000607
  5. TRANDOLAPRIL AND VERAPAMIL HYDROCHLORIDE EXT. REL. [Suspect]
     Dosage: 180/2 MG TWICE DAILY , 240/2 MG DAILY,
     Dates: start: 20000607, end: 20001211
  6. TRANDOLAPRIL AND VERAPAMIL HYDROCHLORIDE EXT. REL. [Suspect]
     Dosage: 180/2 MG TWICE DAILY , 240/2 MG DAILY,
     Dates: start: 20001211
  7. VERAPAMIL [Suspect]
     Dosage: 240 MG, 1 IN 1 D, 180 MG, 1 IN 1 D
     Dates: start: 19991213, end: 20000110
  8. VERAPAMIL [Suspect]
     Dosage: 240 MG, 1 IN 1 D, 180 MG, 1 IN 1 D
     Dates: start: 20000110
  9. TRANDOLAPRIL [Suspect]
     Dosage: 2 MG, 1 IN 1 D
     Dates: start: 19991213
  10. HUMULIN 70/30 [Concomitant]
  11. TERAZOSIN HCL [Concomitant]
  12. RANITIDINE [Concomitant]
  13. WARFARIN SODIUM [Concomitant]
  14. SENNACOT [Concomitant]
  15. CODEINE PHOSPHATE+PARACETAMOL [Concomitant]
  16. ZOCOR [Concomitant]
  17. OXYCODONE [Concomitant]

REACTIONS (9)
  - ANGINA PECTORIS [None]
  - AORTIC ARTERIOSCLEROSIS [None]
  - BACK PAIN [None]
  - ENCEPHALOPATHY [None]
  - PAIN IN EXTREMITY [None]
  - POST PROCEDURAL COMPLICATION [None]
  - RENAL FAILURE ACUTE [None]
  - SPINAL FUSION SURGERY [None]
  - VASCULAR GRAFT [None]
